FAERS Safety Report 9114829 (Version 1)
Quarter: 2013Q1

REPORT INFORMATION
  Report Type: Spontaneous
  Country: US (occurrence: US)
  Receive Date: 20130208
  Receipt Date: 20130208
  Transmission Date: 20140127
  Serious: No
  Sender: FDA-Public Use
  Company Number: US-009507513-1302USA002788

PATIENT
  Age: 27 Year
  Sex: Female
  Weight: 57.6 kg

DRUGS (1)
  1. IMPLANON [Suspect]
     Dosage: UNK
     Dates: start: 20100317

REACTIONS (4)
  - Vulvovaginitis trichomonal [Unknown]
  - Vulvovaginitis trichomonal [Unknown]
  - Metrorrhagia [Unknown]
  - Breast pain [Unknown]
